FAERS Safety Report 9775010 (Version 1)
Quarter: 2013Q4

REPORT INFORMATION
  Report Type: Spontaneous
  Country: IT (occurrence: IT)
  Receive Date: 20131220
  Receipt Date: 20131220
  Transmission Date: 20140711
  Serious: Yes (Hospitalization)
  Sender: FDA-Public Use
  Company Number: IT-SA-2013SA129617

PATIENT
  Age: 80 Year
  Sex: Female

DRUGS (12)
  1. ALDACTONE [Suspect]
     Indication: HYPERTENSION
     Route: 048
     Dates: start: 20130101, end: 20130618
  2. LASIX [Suspect]
     Indication: HYPERTENSION
     Route: 048
     Dates: start: 20130101, end: 20130618
  3. ALLOPURINOL [Concomitant]
     Route: 048
  4. CLOPIDOGREL [Concomitant]
     Route: 048
  5. LORTAAN [Concomitant]
     Dosage: STRENGTH: 50 MG
     Route: 048
  6. TORVAST [Concomitant]
     Route: 048
  7. PANTORC [Concomitant]
     Dosage: STRENGTH: 40 MG
  8. RESPICUR [Concomitant]
     Dosage: STRENGTH:200 MG, FORM: HARD CAPSULE EXTENDED RELEASE
  9. NITROCOR [Concomitant]
     Dosage: STRENGTH: 5 MG/ 24 H
  10. ISOPTIN [Concomitant]
     Dosage: STRENGTH: 80 MG
  11. FOSTER [Concomitant]
     Dosage: STRENGTH: 100/ 6 MCG; FORM: PUFF
  12. SPIRIVA [Concomitant]
     Dosage: STRENGTH: 18 MCG; FORM: CAP FOR INHALER DEVICE

REACTIONS (7)
  - Somnolence [Recovered/Resolved]
  - Tachycardia [Recovered/Resolved]
  - Sopor [Recovered/Resolved]
  - Blood creatinine increased [Recovered/Resolved]
  - Electrolyte imbalance [Recovered/Resolved]
  - Hyponatraemia [Recovered/Resolved]
  - Hypokalaemia [Recovered/Resolved]
